FAERS Safety Report 10628636 (Version 1)
Quarter: 2014Q4

REPORT INFORMATION
  Report Type: Spontaneous
  Country: US (occurrence: US)
  Receive Date: 20141205
  Receipt Date: 20141205
  Transmission Date: 20150529
  Serious: No
  Sender: FDA-Public Use
  Company Number: US-BRISTOL-MYERS SQUIBB COMPANY-21440573

PATIENT
  Sex: Male

DRUGS (4)
  1. REYATAZ [Suspect]
     Active Substance: ATAZANAVIR SULFATE
     Indication: HIV INFECTION
     Dates: start: 2008
  2. NORVIR [Suspect]
     Active Substance: RITONAVIR
  3. INTELENCE [Suspect]
     Active Substance: ETRAVIRINE
  4. EMTRIVA [Suspect]
     Active Substance: EMTRICITABINE

REACTIONS (2)
  - Blood bilirubin increased [Unknown]
  - Hyperhidrosis [Unknown]
